FAERS Safety Report 6210236-5 (Version None)
Quarter: 2009Q2

REPORT INFORMATION
  Report Type: 
  Country: None (occurrence: None)
  Receive Date: 20090601
  Receipt Date: 20090522
  Transmission Date: 20091009
  Serious: Yes (Hospitalization)
  Sender: FDA-Public Use
  Company Number: JP-BRISTOL-MYERS SQUIBB COMPANY-14642128

PATIENT
  Age: 68 Year
  Sex: Male

DRUGS (3)
  1. ERBITUX [Suspect]
     Indication: RECTAL CANCER
     Dosage: 1ST INF 14MAY09
     Route: 042
     Dates: start: 20090514
  2. IRINOTECAN HCL [Suspect]
     Indication: RECTAL CANCER
     Dosage: 1ST INF 14MAY09
     Route: 042
     Dates: start: 20090514
  3. WARFARIN POTASSIUM [Suspect]

REACTIONS (2)
  - HEPATIC FUNCTION ABNORMAL [None]
  - PLATELET COUNT DECREASED [None]
